FAERS Safety Report 8291874-5 (Version None)
Quarter: 2012Q2

REPORT INFORMATION
  Report Type: 
  Country: None (occurrence: None)
  Receive Date: 20120417
  Receipt Date: 20120224
  Transmission Date: 20120825
  Serious: No
  Sender: FDA-Public Use
  Company Number: US-ASTRAZENECA-2012SE13610

PATIENT
  Sex: Female

DRUGS (6)
  1. RANITIDINE [Concomitant]
  2. NEXIUM [Suspect]
     Route: 048
  3. PEPCID [Concomitant]
  4. PRILOSEC OTC [Suspect]
     Route: 048
  5. PRILOSEC [Suspect]
     Route: 048
  6. PROTONIX [Concomitant]

REACTIONS (3)
  - DRUG DOSE OMISSION [None]
  - DRUG INEFFECTIVE [None]
  - CHEST PAIN [None]
